FAERS Safety Report 4471589-1 (Version None)
Quarter: 2004Q4

REPORT INFORMATION
  Report Type: 
  Country: None (occurrence: None)
  Receive Date: 20041012
  Receipt Date: 20040929
  Transmission Date: 20050328
  Serious: Yes (Hospitalization)
  Sender: FDA-Public Use
  Company Number: FR-GLAXOSMITHKLINE-B0346638A

PATIENT
  Age: 82 Year
  Sex: Female
  Weight: 85 kg

DRUGS (11)
  1. DEROXAT [Suspect]
     Indication: ILL-DEFINED DISORDER
     Dosage: 20MG PER DAY
     Route: 048
     Dates: end: 20040906
  2. FORTZAAR [Suspect]
     Route: 048
     Dates: end: 20040906
  3. SERETIDE DISKUS [Concomitant]
  4. CARBOCISTEINE [Concomitant]
  5. TRINITRINE [Concomitant]
  6. LYSOPAINE [Concomitant]
  7. ACETAMINOPHEN W/ PROPOXYPHENE HCL [Concomitant]
  8. ZANIDIP [Concomitant]
  9. QVAR 40 [Concomitant]
  10. CELECTOL [Concomitant]
  11. LEXOMIL [Concomitant]

REACTIONS (3)
  - DRUG INTERACTION [None]
  - HYPONATRAEMIA [None]
  - OEDEMA PERIPHERAL [None]
